FAERS Safety Report 6081015-7 (Version None)
Quarter: 2009Q1

REPORT INFORMATION
  Report Type: 
  Country: None (occurrence: None)
  Receive Date: 20090217
  Receipt Date: 20090206
  Transmission Date: 20090719
  Serious: Yes (Hospitalization)
  Sender: FDA-Public Use
  Company Number: PHHY2009TR04408

PATIENT
  Age: 59 Year
  Sex: Female

DRUGS (3)
  1. ZOLEDRONIC ACID [Suspect]
     Indication: BREAST CANCER
     Dosage: 1 AMPOULE
     Route: 042
     Dates: start: 20080411, end: 20080501
  2. ZOLEDRONIC ACID [Suspect]
     Indication: METASTASES TO BONE
  3. FEMARA [Suspect]
     Dosage: 25 MG
     Dates: start: 20080402

REACTIONS (1)
  - PULMONARY EMBOLISM [None]
